FAERS Safety Report 8375955-3 (Version None)
Quarter: 2012Q2

REPORT INFORMATION
  Report Type: 
  Country: None (occurrence: None)
  Receive Date: 20120522
  Receipt Date: 20120517
  Transmission Date: 20120825
  Serious: Yes (Death, Hospitalization, Other)
  Sender: FDA-Public Use
  Company Number: US-ASTELLAS-2012US004220

PATIENT
  Age: 66 Year
  Sex: Male
  Weight: 99 kg

DRUGS (2)
  1. ERLOTINIB HYDROCHLORIDE [Suspect]
     Indication: NON-SMALL CELL LUNG CANCER METASTATIC
     Dosage: 100 MG, UID/QD
     Route: 048
     Dates: start: 20120404, end: 20120417
  2. AZD6244 HYDROGEN SULFATE [Suspect]
     Indication: NON-SMALL CELL LUNG CANCER METASTATIC
     Dosage: 150 MG, UID/QD
     Route: 048
     Dates: start: 20120404, end: 20120418

REACTIONS (9)
  - INCORRECT DOSE ADMINISTERED [None]
  - RASH [None]
  - ABDOMINAL PAIN [None]
  - VOMITING [None]
  - ATRIAL FIBRILLATION [None]
  - PLEURAL EFFUSION [None]
  - NAUSEA [None]
  - DEATH [None]
  - PERICARDIAL EFFUSION [None]
